FAERS Safety Report 14782248 (Version 1)
Quarter: 2018Q2

REPORT INFORMATION
  Report Type: Report from Study
  Country: BR (occurrence: BR)
  Receive Date: 20180420
  Receipt Date: 20180420
  Transmission Date: 20180711
  Serious: Yes (Other)
  Sender: FDA-Public Use
  Company Number: BR-ROCHE-2109986

PATIENT
  Sex: Female
  Weight: 74 kg

DRUGS (2)
  1. XOLAIR [Suspect]
     Active Substance: OMALIZUMAB
     Indication: ASTHMA
     Route: 058
  2. XOLAIR [Suspect]
     Active Substance: OMALIZUMAB
     Route: 058
     Dates: start: 20180329

REACTIONS (4)
  - Injection site discolouration [Not Recovered/Not Resolved]
  - Movement disorder [Recovering/Resolving]
  - Weight increased [Unknown]
  - Pain in extremity [Not Recovered/Not Resolved]
